FAERS Safety Report 5668682-4 (Version None)
Quarter: 2008Q1

REPORT INFORMATION
  Report Type: 
  Country: None (occurrence: None)
  Receive Date: 20080312
  Receipt Date: 20080303
  Transmission Date: 20080703
  Serious: Yes (Life-Threatening, Hospitalization)
  Sender: FDA-Public Use
  Company Number: E2020-02245-SPO-JP

PATIENT
  Age: 86 Year
  Sex: Female

DRUGS (3)
  1. ARICEPT [Suspect]
     Indication: DEMENTIA ALZHEIMER'S TYPE
     Dosage: 5 MG, 1 IN 1 D, ORAL
     Route: 048
     Dates: start: 20070101, end: 20080122
  2. DIOVAN [Concomitant]
  3. AMLODIPINE BESYLATE [Concomitant]

REACTIONS (13)
  - BLOOD PRESSURE DECREASED [None]
  - CONVULSION [None]
  - CYANOSIS [None]
  - DYSPNOEA [None]
  - FALL [None]
  - FEELING ABNORMAL [None]
  - HEART RATE DECREASED [None]
  - HYPOXIA [None]
  - LOSS OF CONSCIOUSNESS [None]
  - RESPIRATION ABNORMAL [None]
  - RESPIRATORY RATE INCREASED [None]
  - URINARY INCONTINENCE [None]
  - VOMITING [None]
